FAERS Safety Report 12647217 (Version 1)
Quarter: 2016Q3

REPORT INFORMATION
  Report Type: Spontaneous
  Country: US (occurrence: None)
  Receive Date: 20160811
  Receipt Date: 20160811
  Transmission Date: 20161109
  Serious: Yes (Other)
  Sender: FDA-Public Use
  Company Number: None

PATIENT
  Age: 59 Year
  Sex: Female
  Weight: 57.15 kg

DRUGS (6)
  1. SYNTHROID [Concomitant]
     Active Substance: LEVOTHYROXINE SODIUM
  2. CLARATIN [Concomitant]
  3. ZANEX [Concomitant]
  4. BABY ASPRIN [Concomitant]
     Active Substance: ASPIRIN
  5. LEVAQUIN [Suspect]
     Active Substance: LEVOFLOXACIN
     Indication: SINUSITIS
     Route: 048
     Dates: start: 20160725, end: 20160803
  6. VITAMEN D [Concomitant]

REACTIONS (5)
  - Musculoskeletal pain [None]
  - Fatigue [None]
  - Motor dysfunction [None]
  - Arthropathy [None]
  - Influenza like illness [None]

NARRATIVE: CASE EVENT DATE: 20160801
